FAERS Safety Report 7561566-6 (Version None)
Quarter: 2011Q2

REPORT INFORMATION
  Report Type: 
  Country: None (occurrence: None)
  Receive Date: 20110621
  Receipt Date: 20101008
  Transmission Date: 20111010
  Serious: No
  Sender: FDA-Public Use
  Company Number: US-ASTRAZENECA-2010SE44352

PATIENT
  Age: 73 Year
  Sex: Female
  Weight: 55.3 kg

DRUGS (5)
  1. ASPIRIN [Concomitant]
  2. PULMICORT FLEXHALER [Suspect]
     Indication: EMPHYSEMA
     Route: 055
     Dates: start: 20100501
  3. SYNTHROID [Concomitant]
  4. PULMICORT FLEXHALER [Suspect]
     Indication: CHRONIC OBSTRUCTIVE PULMONARY DISEASE
     Route: 055
     Dates: start: 20100501
  5. IBUPROFEN [Concomitant]

REACTIONS (7)
  - ORAL CANDIDIASIS [None]
  - CHILLS [None]
  - FUNGAL INFECTION [None]
  - DRY MOUTH [None]
  - DYSPHONIA [None]
  - WEIGHT DECREASED [None]
  - APHONIA [None]
